FAERS Safety Report 14974785 (Version 1)
Quarter: 2018Q2

REPORT INFORMATION
  Report Type: Spontaneous
  Country: FI (occurrence: FI)
  Receive Date: 20180605
  Receipt Date: 20180605
  Transmission Date: 20180711
  Serious: Yes (Life-Threatening)
  Sender: FDA-Public Use
  Company Number: FI-PFIZER INC-2018227493

PATIENT
  Age: 76 Year
  Sex: Male

DRUGS (8)
  1. COZAAR COMP [Concomitant]
     Active Substance: HYDROCHLOROTHIAZIDE\LOSARTAN POTASSIUM
     Indication: HYPERTENSION
     Dosage: 2 DF, DAILY
     Route: 048
     Dates: start: 2004
  2. IMOVANE [Concomitant]
     Active Substance: ZOPICLONE
     Indication: SLEEP DISORDER
     Route: 048
     Dates: start: 2004
  3. METHOTREXATE PFIZER [Suspect]
     Active Substance: METHOTREXATE
     Indication: RHEUMATOID ARTHRITIS
     Dosage: 25 MG, WEEKLY
     Route: 058
     Dates: start: 20151104, end: 20180314
  4. DAKTARIN [Concomitant]
     Active Substance: MICONAZOLE NITRATE
     Dosage: 2 DF, DAILY
     Route: 061
     Dates: start: 20180228
  5. PANACOD [Concomitant]
     Active Substance: ACETAMINOPHEN\CODEINE PHOSPHATE
     Indication: PAIN
     Route: 048
     Dates: start: 2004
  6. ACICLOVIR [Concomitant]
     Active Substance: ACYCLOVIR
     Dosage: 4 G, DAILY
     Route: 048
     Dates: start: 20180109, end: 20180115
  7. AVODART [Concomitant]
     Active Substance: DUTASTERIDE
     Indication: BENIGN PROSTATIC HYPERPLASIA
     Dosage: 0.5 MG, DAILY
     Route: 048
     Dates: start: 201707
  8. BURANA [Concomitant]
     Active Substance: IBUPROFEN
     Route: 048
     Dates: start: 201606

REACTIONS (4)
  - Pyrexia [Not Recovered/Not Resolved]
  - Interstitial lung disease [Not Recovered/Not Resolved]
  - Pulmonary fibrosis [Not Recovered/Not Resolved]
  - Respiratory failure [Not Recovered/Not Resolved]

NARRATIVE: CASE EVENT DATE: 20180306
